FAERS Safety Report 5357210-9 (Version None)
Quarter: 2007Q2

REPORT INFORMATION
  Report Type: 
  Country: None (occurrence: None)
  Receive Date: 20070612
  Receipt Date: 20070612
  Transmission Date: 20071010
  Serious: Yes (Other)
  Sender: FDA-Public Use
  Company Number: None

PATIENT
  Age: 9 Month
  Sex: Male
  Weight: 11.3399 kg

DRUGS (1)
  1. METOCLOPRAMIDE 5MG/5ML MORTON GROVE PHARM. [Suspect]
     Indication: GASTROOESOPHAGEAL REFLUX DISEASE
     Dosage: 0.8 ML TWICE DAILY PO
     Route: 048
     Dates: start: 20070215, end: 20070607

REACTIONS (1)
  - DYSKINESIA [None]
